FAERS Safety Report 24325978 (Version 3)
Quarter: 2024Q4

REPORT INFORMATION
  Report Type: Spontaneous
  Country: FR (occurrence: FR)
  Receive Date: 20240917
  Receipt Date: 20241003
  Transmission Date: 20250115
  Serious: Yes (Life-Threatening)
  Sender: SANDOZ
  Company Number: None

PATIENT
  Age: 10 Year
  Sex: Female
  Weight: 28 kg

DRUGS (32)
  1. EPINEPHRINE [Suspect]
     Active Substance: EPINEPHRINE
     Indication: Vasopressive therapy
     Dosage: UNK
     Route: 042
     Dates: start: 20240607, end: 20240621
  2. EPINEPHRINE HYDROCHLORIDE [Suspect]
     Active Substance: EPINEPHRINE HYDROCHLORIDE
     Indication: Vasopressive therapy
     Dosage: UNK
     Route: 042
     Dates: start: 20240607, end: 20240621
  3. AMBISOME [Suspect]
     Active Substance: AMPHOTERICIN B
     Indication: Antifungal prophylaxis
     Dosage: UNK,50 MG, POUDRE POUR SUSPENSION DE LIPOSOMES POUR PERFUSION
     Route: 055
     Dates: start: 20240608
  4. AMIKACIN [Suspect]
     Active Substance: AMIKACIN
     Indication: Antibiotic prophylaxis
     Dosage: UNK
     Route: 065
     Dates: start: 20240612, end: 20240612
  5. AMIKACIN [Suspect]
     Active Substance: AMIKACIN
     Indication: Septic shock
  6. BACTRIM [Suspect]
     Active Substance: SULFAMETHOXAZOLE\TRIMETHOPRIM
     Indication: Septic shock
     Dosage: UNK,40 MG/ML + 8 MG/ML, SUSPENSION BUVABLE
     Route: 048
     Dates: start: 20240611
  7. BACTRIM [Suspect]
     Active Substance: SULFAMETHOXAZOLE\TRIMETHOPRIM
     Indication: Antifungal prophylaxis
  8. CEFAZOLIN SODIUM [Suspect]
     Active Substance: CEFAZOLIN SODIUM
     Indication: Analgesic therapy
     Dosage: UNK
     Route: 042
     Dates: start: 20240607, end: 20240613
  9. CEFAZOLIN SODIUM [Suspect]
     Active Substance: CEFAZOLIN SODIUM
     Indication: Antibiotic prophylaxis
  10. CEFTAZIDIME [Suspect]
     Active Substance: CEFTAZIDIME
     Indication: Pseudomonas infection
     Dosage: UNK
     Route: 042
     Dates: start: 20240613, end: 20240621
  11. CELLCEPT [Suspect]
     Active Substance: MYCOPHENOLATE MOFETIL
     Indication: Prophylaxis against transplant rejection
     Dosage: UNK
     Route: 048
     Dates: start: 20240607
  12. DEXMEDETOMIDINE [Suspect]
     Active Substance: DEXMEDETOMIDINE
     Indication: Sedation
     Dosage: UNK,100 MICROGRAMMES/ML, SOLUTION ? DILUER POUR PERFUSION
     Route: 042
     Dates: start: 20240607
  13. FUNGIZONE [Suspect]
     Active Substance: AMPHOTERICIN B
     Indication: Antifungal prophylaxis
     Dosage: UNK,10 POUR CENT, SUSPENSION BUVABLE
     Route: 048
     Dates: start: 20240608
  14. FUROSEMIDE [Suspect]
     Active Substance: FUROSEMIDE
     Indication: Fluid retention
     Dosage: UNK
     Route: 042
     Dates: start: 20240612
  15. GANCICLOVIR [Suspect]
     Active Substance: GANCICLOVIR
     Indication: Product used for unknown indication
     Dosage: UNK
     Route: 042
     Dates: start: 20240608, end: 20240617
  16. HEPARIN SODIUM [Suspect]
     Active Substance: HEPARIN SODIUM
     Dosage: UNK
     Route: 058
     Dates: start: 20240616, end: 20240619
  17. HEPARIN SODIUM [Suspect]
     Active Substance: HEPARIN SODIUM
     Indication: Thrombosis prophylaxis
     Dosage: UNK, 5000 UI/0,2 ML, SOLUTION INJECTABLE POUR VOIE SOUS CUTANEE
     Route: 042
     Dates: start: 20240616, end: 20240619
  18. MIDAZOLAM HYDROCHLORIDE [Suspect]
     Active Substance: MIDAZOLAM HYDROCHLORIDE
     Indication: Sedation
     Dosage: UNK
     Route: 042
     Dates: start: 20240607
  19. METHYLPREDNISOLONE [Suspect]
     Active Substance: METHYLPREDNISOLONE
     Indication: Prophylaxis against transplant rejection
     Dosage: UNK
     Route: 042
     Dates: start: 20240607, end: 20240617
  20. TACROLIMUS [Suspect]
     Active Substance: TACROLIMUS
     Indication: Prophylaxis against transplant rejection
     Dosage: UNK
     Route: 048
     Dates: start: 20240607
  21. TACROLIMUS [Suspect]
     Active Substance: TACROLIMUS
     Dosage: UNK
     Route: 058
     Dates: start: 20240607
  22. NYSTATIN [Suspect]
     Active Substance: NYSTATIN
     Indication: Antifungal prophylaxis
     Dosage: UNK,1.000.000 U.I., G?LULE
     Route: 048
     Dates: start: 20240617, end: 20240710
  23. SUFENTANIL CITRATE [Suspect]
     Active Substance: SUFENTANIL CITRATE
     Indication: Analgesic therapy
     Dosage: UNK
     Route: 042
     Dates: start: 20240701, end: 20240706
  24. SUFENTANIL CITRATE [Suspect]
     Active Substance: SUFENTANIL CITRATE
     Dosage: UNK
     Route: 042
     Dates: start: 20240607, end: 20240620
  25. NICARDIPINE [Suspect]
     Active Substance: NICARDIPINE
     Indication: Hypertension
     Dosage: UNK,10 MG/10 ML, SOLUTION INJECTABLE
     Route: 042
     Dates: start: 20240609, end: 20240616
  26. NOREPINEPHRINE [Suspect]
     Active Substance: NOREPINEPHRINE\NOREPINEPHRINE BITARTRATE
     Indication: Vasopressive therapy
     Dosage: UNK
     Route: 042
     Dates: start: 20240607, end: 20240612
  27. NOREPINEPHRINE [Suspect]
     Active Substance: NOREPINEPHRINE\NOREPINEPHRINE BITARTRATE
     Indication: Vasopressive therapy
     Dosage: UNK
     Route: 042
     Dates: start: 20240628, end: 20240707
  28. ACETAMINOPHEN [Suspect]
     Active Substance: ACETAMINOPHEN
     Indication: Analgesic therapy
     Dosage: UNK,O-ACETYL SALICYLATE
     Route: 048
     Dates: start: 20240617
  29. PANTOPRAZOLE SODIUM [Suspect]
     Active Substance: PANTOPRAZOLE SODIUM
     Indication: Prophylaxis against gastrointestinal ulcer
     Dosage: UNK,40 MG, POUDRE POUR SOLUTION INJECTABLE
     Route: 042
     Dates: start: 20240617
  30. PIPERACILLIN SODIUM\TAZOBACTAM SODIUM [Suspect]
     Active Substance: PIPERACILLIN SODIUM\TAZOBACTAM SODIUM
     Dosage: UNK
     Route: 042
     Dates: start: 20240612, end: 20240612
  31. PIPERACILLIN SODIUM\TAZOBACTAM SODIUM [Suspect]
     Active Substance: PIPERACILLIN SODIUM\TAZOBACTAM SODIUM
     Indication: Pseudomonas infection
     Dosage: UNK,4 G/0,5 G, POUDRE POUR SOLUTION POUR PERFUSION
     Route: 042
     Dates: start: 20240622, end: 20240717
  32. VALGANCICLOVIR HYDROCHLORIDE [Suspect]
     Active Substance: VALGANCICLOVIR HYDROCHLORIDE
     Indication: Antiviral prophylaxis
     Dosage: UNK,POUDRE POUR SOLUTION BUVABLE
     Route: 042
     Dates: start: 20240617

REACTIONS (3)
  - Myocardial calcification [Recovering/Resolving]
  - Off label use [Unknown]
  - Off label use [Not Recovered/Not Resolved]
